FAERS Safety Report 7053347-7 (Version None)
Quarter: 2010Q4

REPORT INFORMATION
  Report Type: 
  Country: None (occurrence: None)
  Receive Date: 20101014
  Receipt Date: 20101005
  Transmission Date: 20110411
  Serious: Yes (Death, Hospitalization, Other)
  Sender: FDA-Public Use
  Company Number: 018348

PATIENT
  Sex: Female
  Weight: 61 kg

DRUGS (9)
  1. CERTOLIZUMAB PEGOL (CERTOLIZUMAB PEGOL) [Suspect]
     Indication: RHEUMATOID ARTHRITIS
     Dosage: SEE IMAGE
     Route: 058
     Dates: start: 20060117, end: 20060704
  2. CERTOLIZUMAB PEGOL (CERTOLIZUMAB PEGOL) [Suspect]
     Indication: RHEUMATOID ARTHRITIS
     Dosage: SEE IMAGE
     Route: 058
     Dates: start: 20060704, end: 20071120
  3. METHOTREXATE [Concomitant]
  4. NABUMETONE [Concomitant]
  5. FOLIC ACID [Concomitant]
  6. INDAPAMIDE [Concomitant]
  7. MONONIT [Concomitant]
  8. ASPIRIN [Concomitant]
  9. BISOCARD /00802601/ [Concomitant]

REACTIONS (13)
  - BLOOD CREATININE INCREASED [None]
  - BLOOD POTASSIUM INCREASED [None]
  - BLOOD SODIUM DECREASED [None]
  - BLOOD UREA INCREASED [None]
  - CHOLECYSTITIS [None]
  - CHOLESTASIS [None]
  - GALLBLADDER ENLARGEMENT [None]
  - HEPATIC FAILURE [None]
  - MESENTERIC ARTERIOSCLEROSIS [None]
  - PANCREATIC NEOPLASM [None]
  - PLATELET COUNT DECREASED [None]
  - RED BLOOD CELL COUNT DECREASED [None]
  - WHITE BLOOD CELL COUNT INCREASED [None]
